FAERS Safety Report 4599762-2 (Version None)
Quarter: 2005Q1

REPORT INFORMATION
  Report Type: 
  Country: None (occurrence: None)
  Receive Date: 20050303
  Receipt Date: 20050216
  Transmission Date: 20050727
  Serious: Yes (Hospitalization)
  Sender: FDA-Public Use
  Company Number: 2005S1000672

PATIENT
  Age: 64 Year
  Sex: Female

DRUGS (4)
  1. IXABEPILONE [Suspect]
     Indication: CERVIX CARCINOMA RECURRENT
     Dosage: 45 MG;QD; IV
     Route: 042
     Dates: start: 20040427, end: 20040427
  2. KETOCONAZOLE [Suspect]
     Indication: CERVIX CARCINOMA RECURRENT
     Dosage: 200 MG, QD; PO
     Route: 048
     Dates: start: 20040426, end: 20040501
  3. BENADRYL ^PFIZER WARNER-LAMBERT^ [Concomitant]
  4. KYTRIL [Concomitant]

REACTIONS (14)
  - ANAEMIA [None]
  - CYSTITIS KLEBSIELLA [None]
  - DEHYDRATION [None]
  - FATIGUE [None]
  - HYDRONEPHROSIS [None]
  - HYPERKALAEMIA [None]
  - INFECTION [None]
  - NEUTROPHIL COUNT INCREASED [None]
  - RENAL DISORDER [None]
  - RENAL FAILURE [None]
  - URINARY TRACT INFECTION ENTEROCOCCAL [None]
  - VAGINAL HAEMORRHAGE [None]
  - VAGINAL ODOUR [None]
  - WHITE BLOOD CELL COUNT INCREASED [None]
